FAERS Safety Report 5430173-3 (Version None)
Quarter: 2007Q3

REPORT INFORMATION
  Report Type: 
  Country: None (occurrence: None)
  Receive Date: 20070731
  Receipt Date: 20070510
  Transmission Date: 20080115
  Serious: No
  Sender: FDA-Public Use
  Company Number: US200705003116

PATIENT
  Age: 50 Year
  Sex: Male
  Weight: 95.2 kg

DRUGS (3)
  1. BYETTA [Suspect]
     Indication: TYPE 2 DIABETES MELLITUS
     Dosage: 10 UG, 2/D, SUBCUTANEOUS; 5 UG, SUBCUTANEOUS
     Route: 058
     Dates: start: 20060801, end: 20070101
  2. BYETTA [Suspect]
     Indication: TYPE 2 DIABETES MELLITUS
     Dosage: 10 UG, 2/D, SUBCUTANEOUS; 5 UG, SUBCUTANEOUS
     Route: 058
     Dates: start: 20070101
  3. EXENATIDE PEN, DISPOSABLE DEVICE (EXENATIDE PEN) [Concomitant]

REACTIONS (3)
  - CHEST DISCOMFORT [None]
  - FLATULENCE [None]
  - NAUSEA [None]
